FAERS Safety Report 4779132-4 (Version None)
Quarter: 2005Q3

REPORT INFORMATION
  Report Type: 
  Country: None (occurrence: None)
  Receive Date: 20050923
  Receipt Date: 20050915
  Transmission Date: 20060218
  Serious: Yes (Death)
  Sender: FDA-Public Use
  Company Number: 2005US-00724

PATIENT
  Age: 81 Year
  Sex: Female

DRUGS (1)
  1. CIPROFLOXACIN [Suspect]

REACTIONS (8)
  - BLOOD POTASSIUM INCREASED [None]
  - DEHYDRATION [None]
  - HAEMODIALYSIS [None]
  - RENAL FAILURE ACUTE [None]
  - RENAL IMPAIRMENT [None]
  - SOMNOLENCE [None]
  - TUBULOINTERSTITIAL NEPHRITIS [None]
  - VASCULITIS [None]
